FAERS Safety Report 16192046 (Version 8)
Quarter: 2022Q2

REPORT INFORMATION
  Report Type: Spontaneous
  Country: PL (occurrence: PL)
  Receive Date: 20190412
  Receipt Date: 20220506
  Transmission Date: 20220720
  Serious: Yes (Hospitalization, Other)
  Sender: FDA-Public Use
  Company Number: PHHY2019PL082623

PATIENT
  Age: 23 Year
  Sex: Female
  Weight: 65 kg

DRUGS (8)
  1. MYCOPHENOLATE MOFETIL [Suspect]
     Active Substance: MYCOPHENOLATE MOFETIL
     Indication: Immunosuppressant drug therapy
     Dosage: UNK
     Route: 065
  2. MYCOPHENOLATE MOFETIL [Suspect]
     Active Substance: MYCOPHENOLATE MOFETIL
     Indication: Renal transplant
  3. BASILIXIMAB [Suspect]
     Active Substance: BASILIXIMAB
     Indication: Renal transplant
     Dosage: UNK
     Route: 065
  4. BASILIXIMAB [Suspect]
     Active Substance: BASILIXIMAB
     Indication: Immunosuppressant drug therapy
  5. TACROLIMUS [Suspect]
     Active Substance: TACROLIMUS
     Indication: Immunosuppressant drug therapy
     Dosage: 0.75, QD
     Route: 048
  6. TACROLIMUS [Suspect]
     Active Substance: TACROLIMUS
     Indication: Renal transplant
  7. METHYLPREDNISOLONE [Suspect]
     Active Substance: METHYLPREDNISOLONE
     Indication: Renal transplant
     Dosage: UNK
     Route: 065
  8. METHYLPREDNISOLONE [Suspect]
     Active Substance: METHYLPREDNISOLONE
     Indication: Immunosuppressant drug therapy

REACTIONS (7)
  - Disease recurrence [Recovered/Resolved]
  - Renal failure [Unknown]
  - Thrombotic microangiopathy [Recovered/Resolved]
  - Complications of transplanted kidney [Recovered/Resolved]
  - Atypical haemolytic uraemic syndrome [Recovered/Resolved]
  - Renal impairment [Recovering/Resolving]
  - Haemolytic uraemic syndrome [Not Recovered/Not Resolved]

NARRATIVE: CASE EVENT DATE: 20180201
